FAERS Safety Report 12628154 (Version 1)
Quarter: 2016Q3

REPORT INFORMATION
  Report Type: Spontaneous
  Country: PL (occurrence: PL)
  Receive Date: 20160808
  Receipt Date: 20160808
  Transmission Date: 20161109
  Serious: Yes (Hospitalization)
  Sender: FDA-Public Use
  Company Number: PL-APOTEX-2016AP010179

PATIENT
  Age: 26 Year
  Sex: Male

DRUGS (9)
  1. MIANSERIN [Concomitant]
     Active Substance: MIANSERIN
     Indication: INITIAL INSOMNIA
  2. ARIPIPRAZOLE. [Suspect]
     Active Substance: ARIPIPRAZOLE
     Indication: MANIA
     Route: 065
  3. OLANZAPINE APOTEX [Suspect]
     Active Substance: OLANZAPINE
     Indication: MANIA
     Dosage: 15 MG, PER 24 HOURS
     Route: 065
  4. CLORAZEPATE [Suspect]
     Active Substance: CLORAZEPATE DIPOTASSIUM
     Indication: MANIA
     Route: 065
  5. APOTIAPINA [Suspect]
     Active Substance: QUETIAPINE
     Indication: MANIA
     Route: 065
  6. MIANSERIN [Concomitant]
     Active Substance: MIANSERIN
     Indication: DEPRESSION
     Dosage: AT NIGHT
     Route: 065
  7. HYDROXYZINE [Suspect]
     Active Substance: HYDROXYZINE\HYDROXYZINE HYDROCHLORIDE
     Indication: MANIA
     Route: 065
  8. VALPROIC ACID. [Suspect]
     Active Substance: VALPROIC ACID
     Indication: MANIA
     Dosage: 1500 MG/24H
     Route: 065
  9. ZINC [Concomitant]
     Active Substance: ZINC\ZINC CHLORIDE
     Indication: HEPATO-LENTICULAR DEGENERATION
     Dosage: 180 MG, PER 24 HOUR
     Route: 065

REACTIONS (8)
  - Dyskinesia [None]
  - Dysarthria [None]
  - Drug ineffective [Unknown]
  - Speech disorder [None]
  - Postural tremor [None]
  - Neurological decompensation [Recovering/Resolving]
  - Dysphagia [None]
  - Salivary hypersecretion [None]
